FAERS Safety Report 6675103-1 (Version None)
Quarter: 2010Q2

REPORT INFORMATION
  Report Type: 
  Country: None (occurrence: None)
  Receive Date: 20100407
  Receipt Date: 20100323
  Transmission Date: 20101027
  Serious: Yes (Life-Threatening, Hospitalization)
  Sender: FDA-Public Use
  Company Number: AUR-APL-2010-00936

PATIENT
  Age: 72 Year
  Sex: Female
  Weight: 70 kg

DRUGS (7)
  1. MIRTAZAPINE [Suspect]
     Indication: MULTIPLE MYELOMA
     Dosage: 30 MG
  2. LYRICA [Suspect]
     Indication: MULTIPLE MYELOMA
     Dosage: 300MG - BID
  3. REVLIMID [Suspect]
     Indication: MULTIPLE MYELOMA
     Dosage: 5 MG - DAILY - ORAL
     Route: 048
     Dates: start: 20100222, end: 20100308
  4. DEXAMETHASONE [Suspect]
     Indication: MULTIPLE MYELOMA
     Dosage: 20 MG
     Dates: start: 20100222, end: 20100308
  5. AMITRIPTYLINE [Suspect]
     Indication: MULTIPLE MYELOMA
     Dosage: 50 MG - BID
  6. FENTANYL [Suspect]
     Indication: MULTIPLE MYELOMA
     Dosage: 50 MCG
  7. EPOETIN BETA [Suspect]
     Indication: MULTIPLE MYELOMA
     Dosage: 1 DOSE DAILY

REACTIONS (2)
  - INTESTINAL PERFORATION [None]
  - PYREXIA [None]
